FAERS Safety Report 15042433 (Version 1)
Quarter: 2018Q2

REPORT INFORMATION
  Report Type: Spontaneous
  Country: JP (occurrence: JP)
  Receive Date: 20180621
  Receipt Date: 20180621
  Transmission Date: 20180711
  Serious: Yes (Death, Hospitalization, Other)
  Sender: FDA-Public Use
  Company Number: PHJP2018JP011969

PATIENT
  Age: 82 Year
  Sex: Male

DRUGS (3)
  1. IMATINIB [Suspect]
     Active Substance: IMATINIB
     Indication: CHRONIC MYELOID LEUKAEMIA TRANSFORMATION
     Dosage: 400 MG, QD
     Route: 048
     Dates: start: 200904
  2. NILOTINIB [Suspect]
     Active Substance: NILOTINIB
     Indication: BLAST CRISIS IN MYELOGENOUS LEUKAEMIA
     Dosage: 400 MG, QD
     Route: 048
  3. IMATINIB [Suspect]
     Active Substance: IMATINIB
     Dosage: 200 MG, UNK
     Route: 048

REACTIONS (2)
  - Pancytopenia [Unknown]
  - White blood cell count increased [Fatal]
